FAERS Safety Report 5753771-6 (Version None)
Quarter: 2008Q2

REPORT INFORMATION
  Report Type: 
  Country: None (occurrence: None)
  Receive Date: 20080527
  Receipt Date: 20080527
  Transmission Date: 20081010
  Serious: Yes (Hospitalization)
  Sender: FDA-Public Use
  Company Number: None

PATIENT
  Sex: Male
  Weight: 49.6 kg

DRUGS (2)
  1. IRINOTECAN HCL [Suspect]
     Dosage: 586 MG
  2. VINCRISTINE SULFATE [Suspect]
     Dosage: 8 MG

REACTIONS (7)
  - BLOOD CULTURE POSITIVE [None]
  - BLOOD SODIUM DECREASED [None]
  - DIARRHOEA [None]
  - HYPOTENSION [None]
  - NO THERAPEUTIC RESPONSE [None]
  - PYREXIA [None]
  - VOMITING [None]
